FAERS Safety Report 9323496 (Version 1)
Quarter: 2013Q2

REPORT INFORMATION
  Report Type: Spontaneous
  Country: DE (occurrence: DE)
  Receive Date: 20130603
  Receipt Date: 20130603
  Transmission Date: 20140414
  Serious: Yes (Life-Threatening, Hospitalization)
  Sender: FDA-Public Use
  Company Number: DE-JNJFOC-20130519220

PATIENT
  Sex: Male
  Weight: 95 kg

DRUGS (8)
  1. XARELTO [Suspect]
     Indication: CEREBROVASCULAR ACCIDENT PROPHYLAXIS
     Dosage: DOSE: 15 MG OR 20 MG
     Route: 065
  2. XARELTO [Suspect]
     Indication: ATRIAL FIBRILLATION
     Dosage: DOSE: 15 MG OR 20 MG
     Route: 065
  3. SIMVASTATIN [Concomitant]
     Route: 065
  4. DIGIMERCK [Concomitant]
     Route: 065
  5. TORASEMID [Concomitant]
     Route: 065
  6. TELMISARTAN [Concomitant]
     Route: 065
  7. METFORMIN [Concomitant]
     Route: 065
  8. BISOPROLOL [Concomitant]
     Route: 065

REACTIONS (4)
  - Acute coronary syndrome [Unknown]
  - Coronary artery disease [Unknown]
  - Sensory disturbance [Unknown]
  - Electrocardiogram change [Unknown]
